FAERS Safety Report 9296417 (Version 3)
Quarter: 2013Q3

REPORT INFORMATION
  Report Type: Report from Study
  Country: US (occurrence: US)
  Receive Date: 20130517
  Receipt Date: 20130820
  Transmission Date: 20140515
  Serious: Yes (Hospitalization, Other)
  Sender: FDA-Public Use
  Company Number: US-ABBOTT-13P-163-1090427-00

PATIENT
  Sex: Female
  Weight: 108.96 kg

DRUGS (13)
  1. DEPAKOTE [Suspect]
     Indication: TEMPORAL LOBE EPILEPSY
     Route: 048
  2. DEPAKOTE [Suspect]
     Indication: AFFECTIVE DISORDER
     Route: 048
  3. AZATHIOPRINE [Suspect]
     Indication: PSORIATIC ARTHROPATHY
     Dates: start: 2010
  4. ENBREL [Suspect]
     Indication: PSORIATIC ARTHROPATHY
     Dosage: 50 MG EVERY WEEK
     Dates: start: 2009, end: 201105
  5. ENBREL [Suspect]
     Dates: start: 201107, end: 201110
  6. FOLIC ACID [Concomitant]
     Indication: PRODUCT USED FOR UNKNOWN INDICATION
  7. BUPROPION [Concomitant]
     Indication: DEPRESSION
  8. FLUOXETINE [Concomitant]
     Indication: DEPRESSION
  9. SYNTHROID [Concomitant]
     Indication: HYPOTHYROIDISM
  10. LIOTHYRONINE [Concomitant]
     Indication: HYPOTHYROIDISM
  11. ADVAIR [Concomitant]
     Indication: CHRONIC OBSTRUCTIVE PULMONARY DISEASE
  12. MELATONIN [Concomitant]
     Indication: SLEEP DISORDER THERAPY
  13. HUMIRA [Concomitant]
     Indication: PSORIATIC ARTHROPATHY
     Route: 058
     Dates: start: 201110

REACTIONS (20)
  - Hepatic steatosis [Not Recovered/Not Resolved]
  - Cholecystitis infective [Recovered/Resolved]
  - Renal cell carcinoma [Recovered/Resolved]
  - Convulsion [Not Recovered/Not Resolved]
  - Loss of consciousness [Recovered/Resolved]
  - Fall [Recovered/Resolved]
  - Concussion [Recovered/Resolved]
  - Syncope [Not Recovered/Not Resolved]
  - Syncope [Recovered/Resolved]
  - Lower limb fracture [Recovered/Resolved]
  - VIth nerve paralysis [Not Recovered/Not Resolved]
  - Essential tremor [Not Recovered/Not Resolved]
  - Hypertension [Not Recovered/Not Resolved]
  - Fall [Recovered/Resolved]
  - Chronic obstructive pulmonary disease [Recovered/Resolved]
  - Bronchitis chronic [Not Recovered/Not Resolved]
  - Balance disorder [Not Recovered/Not Resolved]
  - Joint instability [Not Recovered/Not Resolved]
  - Weight increased [Not Recovered/Not Resolved]
  - Asthma [Not Recovered/Not Resolved]
